FAERS Safety Report 9503948 (Version 4)
Quarter: 2013Q4

REPORT INFORMATION
  Report Type: Spontaneous
  Country: BE (occurrence: BE)
  Receive Date: 20130906
  Receipt Date: 20131125
  Transmission Date: 20140711
  Serious: Yes (Hospitalization, Other)
  Sender: FDA-Public Use
  Company Number: BE-ELI_LILLY_AND_COMPANY-BE201308001216

PATIENT
  Sex: Male

DRUGS (4)
  1. ZYPADHERA [Suspect]
     Indication: PSYCHOTIC DISORDER
     Dosage: 300 MG, 2/M
     Route: 065
     Dates: start: 20130207
  2. ZYPADHERA [Suspect]
     Indication: SCHIZOPHRENIA
  3. ZYPREXA [Concomitant]
     Indication: PRODUCT USED FOR UNKNOWN INDICATION
     Dosage: 15 MG, QD
     Route: 048
  4. ZYPREXA [Concomitant]
     Dosage: 10 MG, UNKNOWN
     Route: 048

REACTIONS (5)
  - Agitation [Recovered/Resolved]
  - Cerebrovascular accident [Recovered/Resolved]
  - Sedation [Recovered/Resolved]
  - Mental impairment [Recovered/Resolved]
  - Dizziness [Recovered/Resolved]
